FAERS Safety Report 6983895-7 (Version None)
Quarter: 2010Q3

REPORT INFORMATION
  Report Type: 
  Country: None (occurrence: None)
  Receive Date: 20100914
  Receipt Date: 20090327
  Transmission Date: 20110219
  Serious: No
  Sender: FDA-Public Use
  Company Number: US-WYE-H08746409

PATIENT
  Age: 21 Year
  Sex: Male

DRUGS (1)
  1. ADVIL PM [Suspect]
     Indication: HEADACHE
     Dosage: 3 CAPLETS X 1
     Route: 048
     Dates: start: 20090327, end: 20090327

REACTIONS (3)
  - ACCIDENTAL OVERDOSE [None]
  - SOMNOLENCE [None]
  - WRONG DRUG ADMINISTERED [None]
